FAERS Safety Report 14048551 (Version 1)
Quarter: 2017Q4

REPORT INFORMATION
  Report Type: Spontaneous
  Country: CN (occurrence: CN)
  Receive Date: 20171005
  Receipt Date: 20171005
  Transmission Date: 20180321
  Serious: Yes (Other)
  Sender: FDA-Public Use
  Company Number: CN-PFIZER INC-2017430588

PATIENT
  Age: 65 Year
  Sex: Male

DRUGS (7)
  1. BETALOC [Concomitant]
     Active Substance: METOPROLOL TARTRATE
     Dosage: UNK
     Dates: start: 2008
  2. CORDARONE [Suspect]
     Active Substance: AMIODARONE HYDROCHLORIDE
     Dosage: 2.5 DF, WEEKLY (2.5 TABS/WEEK)
     Route: 048
  3. PLAVIX [Concomitant]
     Active Substance: CLOPIDOGREL BISULFATE
     Dosage: UNK
     Dates: start: 2008
  4. CORDARONE [Suspect]
     Active Substance: AMIODARONE HYDROCHLORIDE
     Indication: VENTRICULAR EXTRASYSTOLES
     Dosage: 0.1 G, 1X/DAY
     Route: 048
     Dates: start: 2008
  5. ASPIRIN. [Concomitant]
     Active Substance: ASPIRIN
     Dosage: UNK
     Dates: start: 2008
  6. LIPITOR [Concomitant]
     Active Substance: ATORVASTATIN CALCIUM
     Dosage: UNK
     Dates: start: 2008
  7. ACERTIL [Concomitant]
     Active Substance: PERINDOPRIL ARGININE
     Dosage: UNK
     Dates: start: 2008

REACTIONS (4)
  - Dyspnoea [Recovering/Resolving]
  - Productive cough [Recovering/Resolving]
  - Interstitial lung disease [Not Recovered/Not Resolved]
  - Off label use [Unknown]

NARRATIVE: CASE EVENT DATE: 201704
